FAERS Safety Report 16014612 (Version 3)
Quarter: 2019Q2

REPORT INFORMATION
  Report Type: Spontaneous
  Country: US (occurrence: US)
  Receive Date: 20190227
  Receipt Date: 20190430
  Transmission Date: 20190711
  Serious: Yes (Other)
  Sender: FDA-Public Use
  Company Number: US-ASTRAZENECA-2018SF64794

PATIENT
  Age: 659 Month
  Sex: Female
  Weight: 118.4 kg

DRUGS (15)
  1. TIZANIDINE. [Concomitant]
     Active Substance: TIZANIDINE
  2. PRILOSEC [Suspect]
     Active Substance: OMEPRAZOLE MAGNESIUM
     Indication: GASTROOESOPHAGEAL REFLUX DISEASE
     Route: 048
     Dates: start: 20120101, end: 20120601
  3. FUROSEMIDE. [Concomitant]
     Active Substance: FUROSEMIDE
  4. PROTONIX [Suspect]
     Active Substance: PANTOPRAZOLE SODIUM
     Indication: GASTROOESOPHAGEAL REFLUX DISEASE
     Route: 065
     Dates: start: 20120601, end: 20181029
  5. GABAPENTIN. [Concomitant]
     Active Substance: GABAPENTIN
  6. VALSARTAN. [Concomitant]
     Active Substance: VALSARTAN
  7. METOPROLOL. [Concomitant]
     Active Substance: METOPROLOL
  8. TOPIRAMATE. [Concomitant]
     Active Substance: TOPIRAMATE
  9. PROTONIX [Suspect]
     Active Substance: PANTOPRAZOLE SODIUM
     Indication: GASTROOESOPHAGEAL REFLUX DISEASE
     Dosage: GENERIC
     Route: 065
     Dates: start: 2006, end: 2018
  10. HYDROCODONE [Concomitant]
     Active Substance: HYDROCODONE
  11. PRILOSEC [Suspect]
     Active Substance: OMEPRAZOLE MAGNESIUM
     Indication: GASTROOESOPHAGEAL REFLUX DISEASE
     Route: 048
     Dates: start: 20120101
  12. SIMVASTATIN. [Concomitant]
     Active Substance: SIMVASTATIN
  13. AMLODIPINE [Concomitant]
     Active Substance: AMLODIPINE BESYLATE
  14. ZOLPIDEM [Concomitant]
     Active Substance: ZOLPIDEM\ZOLPIDEM TARTRATE
  15. PREDNISONE. [Concomitant]
     Active Substance: PREDNISONE

REACTIONS (3)
  - Renal injury [Unknown]
  - Acute kidney injury [Not Recovered/Not Resolved]
  - Chronic kidney disease [Unknown]

NARRATIVE: CASE EVENT DATE: 201612
